FAERS Safety Report 4791089-9 (Version None)
Quarter: 2005Q4

REPORT INFORMATION
  Report Type: 
  Country: None (occurrence: None)
  Receive Date: 20051005
  Receipt Date: 20050920
  Transmission Date: 20060501
  Serious: Yes (Other)
  Sender: FDA-Public Use
  Company Number: EWC050945974

PATIENT
  Age: 63 Year
  Sex: Male

DRUGS (4)
  1. OLANZAPINE - ORAL (OLANZAPINE) [Suspect]
     Indication: BIPOLAR I DISORDER
     Dates: start: 20050628, end: 20050629
  2. OLANZAPINE - ORAL (OLANZAPINE) [Suspect]
     Indication: MANIA
     Dates: start: 20050628, end: 20050629
  3. CHLORPROTIXEN (CHLORPROTHIXENE HYDROCHLORIDE) [Concomitant]
  4. DIAZEPAM [Concomitant]

REACTIONS (5)
  - CLONIC CONVULSION [None]
  - CYANOSIS [None]
  - FALL [None]
  - LOSS OF CONSCIOUSNESS [None]
  - TONIC CONVULSION [None]
